FAERS Safety Report 12328708 (Version 1)
Quarter: 2016Q2

REPORT INFORMATION
  Report Type: Spontaneous
  Country: US (occurrence: US)
  Receive Date: 20160503
  Receipt Date: 20160503
  Transmission Date: 20160815
  Serious: No
  Sender: FDA-Public Use
  Company Number: US-BEH-2015050241

PATIENT
  Sex: Female
  Weight: 129 kg

DRUGS (26)
  1. HIZENTRA [Suspect]
     Active Substance: HUMAN IMMUNOGLOBULIN G
     Indication: IMMUNODEFICIENCY COMMON VARIABLE
     Dosage: 4 G 20 ML VIAL
     Route: 058
  2. NORVASC [Concomitant]
     Active Substance: AMLODIPINE BESYLATE
  3. PENICILLIN [Concomitant]
     Active Substance: PENICILLIN
  4. GLIMEPIRIDE. [Concomitant]
     Active Substance: GLIMEPIRIDE
  5. OMEPRAZOLE. [Concomitant]
     Active Substance: OMEPRAZOLE
  6. BUSPIRONE [Concomitant]
     Active Substance: BUSPIRONE HYDROCHLORIDE
  7. CRESTOR [Concomitant]
     Active Substance: ROSUVASTATIN CALCIUM
  8. MULTIVITAMIN [Concomitant]
     Active Substance: VITAMINS
  9. VICODIN [Concomitant]
     Active Substance: ACETAMINOPHEN\HYDROCODONE BITARTRATE
  10. VALIUM [Concomitant]
     Active Substance: DIAZEPAM
  11. LEVAQUIN [Concomitant]
     Active Substance: LEVOFLOXACIN
  12. PROVENTIL HFA [Concomitant]
     Active Substance: ALBUTEROL SULFATE
  13. NOVOLOG [Concomitant]
     Active Substance: INSULIN ASPART
  14. ASPIRIN. [Concomitant]
     Active Substance: ASPIRIN
  15. VITAMIN C [Concomitant]
     Active Substance: ASCORBIC ACID
  16. PV JOINT SUPPORT FORMULA [Concomitant]
  17. HIZENTRA [Suspect]
     Active Substance: HUMAN IMMUNOGLOBULIN G
     Dosage: 2 G 10 ML VIAL
     Route: 058
  18. OXYGEN. [Concomitant]
     Active Substance: OXYGEN
  19. MEDROL [Concomitant]
     Active Substance: METHYLPREDNISOLONE
  20. BENZONATATE. [Concomitant]
     Active Substance: BENZONATATE
  21. ALEVE [Concomitant]
     Active Substance: NAPROXEN SODIUM
  22. LEVEMIR [Concomitant]
     Active Substance: INSULIN DETEMIR
  23. CIPROFLOXACIN. [Concomitant]
     Active Substance: CIPROFLOXACIN
  24. SINGULAIR [Concomitant]
     Active Substance: MONTELUKAST SODIUM
  25. IPRATROPIUM ALBUTEROL [Concomitant]
     Active Substance: ALBUTEROL\IPRATROPIUM
  26. FENOFIBRATE. [Concomitant]
     Active Substance: FENOFIBRATE

REACTIONS (3)
  - Nausea [Unknown]
  - Chills [Unknown]
  - Pyrexia [Unknown]
